FAERS Safety Report 17237873 (Version 1)
Quarter: 2020Q1

REPORT INFORMATION
  Report Type: Spontaneous
  Country: US (occurrence: US)
  Receive Date: 20200106
  Receipt Date: 20200106
  Transmission Date: 20200409
  Serious: No
  Sender: FDA-Public Use
  Company Number: US-SHIRE-US202000077

PATIENT
  Sex: Female

DRUGS (2)
  1. LIALDA [Suspect]
     Active Substance: MESALAMINE
     Indication: COLITIS
     Dosage: 1.2 GRAM, (2 TABS) 2X/DAY:BID
     Route: 065
  2. LIALDA [Suspect]
     Active Substance: MESALAMINE
     Indication: CROHN^S DISEASE
     Dosage: 1.2 GRAM, (2 TABS) 2X/DAY:BID
     Route: 065

REACTIONS (3)
  - Hypersensitivity [Unknown]
  - Constipation [Unknown]
  - Expired product administered [Unknown]
